FAERS Safety Report 9131528 (Version 4)
Quarter: 2013Q4

REPORT INFORMATION
  Report Type: Spontaneous
  Country: JP (occurrence: JP)
  Receive Date: 20130301
  Receipt Date: 20131010
  Transmission Date: 20140711
  Serious: Yes (Other)
  Sender: FDA-Public Use
  Company Number: JP-JNJFOC-20130215653

PATIENT
  Age: 59 Year
  Sex: Male
  Weight: 60 kg

DRUGS (23)
  1. TRAMCET [Suspect]
     Indication: PAIN
     Dosage: 1 PER DAY BEFORE BED TIME
     Route: 048
     Dates: start: 20121221, end: 20130103
  2. TRAMCET [Suspect]
     Indication: PAIN
     Dosage: 2 PER 1 DAY IN THE EVENING AND BEFORE BED TIME
     Route: 048
     Dates: start: 20130104, end: 20130111
  3. EURODIN [Suspect]
     Indication: INSOMNIA
     Dosage: 4MG 1 PER DAY
     Route: 048
     Dates: start: 20121228, end: 20130110
  4. EURODIN [Suspect]
     Indication: INSOMNIA
     Dosage: 2MG 1 PER DAY
     Route: 048
     Dates: start: 20121221, end: 20121227
  5. LYRICA [Concomitant]
     Indication: PAIN IN EXTREMITY
     Route: 048
     Dates: start: 20130104
  6. LYRICA [Concomitant]
     Indication: PAIN IN EXTREMITY
     Route: 048
     Dates: start: 20121221, end: 20130103
  7. LYRICA [Concomitant]
     Indication: PAIN IN EXTREMITY
     Route: 048
     Dates: start: 20121204, end: 20121206
  8. LYRICA [Concomitant]
     Indication: PAIN IN EXTREMITY
     Route: 048
     Dates: start: 20121207, end: 20121210
  9. LYRICA [Concomitant]
     Indication: PAIN IN EXTREMITY
     Route: 048
     Dates: start: 20121210, end: 20121220
  10. LYRICA [Concomitant]
     Indication: DIABETIC NEUROPATHY
     Route: 048
     Dates: start: 20121210, end: 20121220
  11. LYRICA [Concomitant]
     Indication: DIABETIC NEUROPATHY
     Route: 048
     Dates: start: 20121207, end: 20121210
  12. LYRICA [Concomitant]
     Indication: DIABETIC NEUROPATHY
     Route: 048
     Dates: start: 20121204, end: 20121206
  13. LYRICA [Concomitant]
     Indication: DIABETIC NEUROPATHY
     Route: 048
     Dates: start: 20121221, end: 20130103
  14. LYRICA [Concomitant]
     Indication: DIABETIC NEUROPATHY
     Route: 048
     Dates: start: 20130104
  15. LENDORMIN D [Concomitant]
     Indication: INSOMNIA
     Route: 048
     Dates: start: 201212, end: 20130110
  16. CYMBALTA [Concomitant]
     Indication: DIABETIC NEUROPATHY
     Route: 048
  17. NAUZELIN [Concomitant]
     Route: 065
  18. TS-1 [Concomitant]
     Indication: METASTASES TO LYMPH NODES
     Route: 048
     Dates: start: 20121126, end: 20130830
  19. TS-1 [Concomitant]
     Indication: RECTAL CANCER
     Route: 048
     Dates: start: 20121126, end: 20130830
  20. INSULIN [Concomitant]
     Indication: DIABETES MELLITUS
     Route: 058
  21. RHYTHMY [Concomitant]
     Indication: INSOMNIA
     Route: 048
     Dates: start: 20121210, end: 201212
  22. MORPHINE HYDROCHLORIDE [Concomitant]
     Indication: DIABETIC NEUROPATHY
     Route: 048
     Dates: start: 20130112
  23. MORPHINE HYDROCHLORIDE [Concomitant]
     Indication: PAIN IN EXTREMITY
     Route: 048
     Dates: start: 20130112

REACTIONS (11)
  - Personality change [Recovered/Resolved]
  - Road traffic accident [Recovered/Resolved]
  - Abnormal behaviour [Recovered/Resolved]
  - Urinary incontinence [Recovered/Resolved]
  - Poriomania [Recovered/Resolved]
  - Delirium [Recovered/Resolved]
  - Hallucination, visual [Recovered/Resolved]
  - Hallucination, auditory [Recovered/Resolved]
  - Somnolence [Recovered/Resolved]
  - Pain [Recovered/Resolved]
  - Insomnia [Recovered/Resolved]
